FAERS Safety Report 9324760 (Version 1)
Quarter: 2013Q2

REPORT INFORMATION
  Report Type: Report from Study
  Country: DE (occurrence: DE)
  Receive Date: 20130603
  Receipt Date: 20130603
  Transmission Date: 20140414
  Serious: Yes (Hospitalization)
  Sender: FDA-Public Use
  Company Number: DE-ABBOTT-13P-062-1096587-00

PATIENT
  Age: 43 Year
  Sex: Male
  Weight: 100 kg

DRUGS (3)
  1. HUMIRA [Suspect]
     Indication: CROHN^S DISEASE
     Route: 058
     Dates: start: 20120531
  2. AZATHIOPRINE [Concomitant]
     Indication: CROHN^S DISEASE
  3. 6-MP [Concomitant]
     Indication: CROHN^S DISEASE

REACTIONS (1)
  - Intestinal anastomosis complication [Recovered/Resolved with Sequelae]
